FAERS Safety Report 7561080-8 (Version None)
Quarter: 2011Q2

REPORT INFORMATION
  Report Type: 
  Country: None (occurrence: None)
  Receive Date: 20110620
  Receipt Date: 20110620
  Transmission Date: 20111010
  Serious: Yes (Other)
  Sender: FDA-Public Use
  Company Number: None

PATIENT
  Age: 66 Year
  Sex: Female
  Weight: 56.6996 kg

DRUGS (1)
  1. STALEVO 125 [Suspect]
     Indication: PARKINSON'S DISEASE
     Dosage: 125 BID PO
     Route: 048
     Dates: start: 20110426, end: 20110603

REACTIONS (2)
  - CHROMATURIA [None]
  - PRODUCT SUBSTITUTION ISSUE [None]
